FAERS Safety Report 18107987 (Version 2)
Quarter: 2020Q3

REPORT INFORMATION
  Report Type: Report from Study
  Country: FR (occurrence: FR)
  Receive Date: 20200804
  Receipt Date: 20200825
  Transmission Date: 20201103
  Serious: Yes (Other)
  Sender: FDA-Public Use
  Company Number: FR-ROCHE-2652514

PATIENT
  Age: 64 Year
  Sex: Male

DRUGS (12)
  1. AMLODIPINE [Concomitant]
     Active Substance: AMLODIPINE BESYLATE
  2. LANSOPRAZOLE. [Concomitant]
     Active Substance: LANSOPRAZOLE
  3. TOCILIZUMAB. [Suspect]
     Active Substance: TOCILIZUMAB
     Indication: COVID-19
     Route: 042
     Dates: start: 20200410, end: 20200410
  4. NICARDIPINE [Concomitant]
     Active Substance: NICARDIPINE
  5. LOVENOX [Concomitant]
     Active Substance: ENOXAPARIN SODIUM
  6. ROCURONIUM [Concomitant]
     Active Substance: ROCURONIUM BROMIDE
  7. NOVORAPID [Concomitant]
     Active Substance: INSULIN ASPART
  8. OXACILLINE [Concomitant]
     Active Substance: OXACILLIN SODIUM
  9. CALCIUM CHLORIDE. [Concomitant]
     Active Substance: CALCIUM CHLORIDE
  10. BISOPROLOL [Concomitant]
     Active Substance: BISOPROLOL
  11. URAPIDIL [Concomitant]
     Active Substance: URAPIDIL
  12. TOCILIZUMAB. [Suspect]
     Active Substance: TOCILIZUMAB
     Dosage: 20 MG/ML
     Route: 042
     Dates: start: 20200410

REACTIONS (1)
  - Anaemia [Recovered/Resolved]

NARRATIVE: CASE EVENT DATE: 20200411
